FAERS Safety Report 14690417 (Version 6)
Quarter: 2018Q3

REPORT INFORMATION
  Report Type: Spontaneous
  Country: IT (occurrence: IT)
  Receive Date: 20180328
  Receipt Date: 20180807
  Transmission Date: 20181010
  Serious: Yes (Other)
  Sender: FDA-Public Use
  Company Number: IT-MYLANLABS-2018M1018153

PATIENT
  Age: 36 Year
  Sex: Female

DRUGS (8)
  1. NIMESULIDE [Suspect]
     Active Substance: NIMESULIDE
     Dosage: 200 MG, QD
     Route: 065
  2. DICLOFENAC [Suspect]
     Active Substance: DICLOFENAC
     Indication: SCIATICA
     Dosage: 75 MG, QD
     Route: 065
  3. PARACETAMOL [Suspect]
     Active Substance: ACETAMINOPHEN
     Indication: NEURITIS
     Dosage: 1?2 G,QD
     Route: 065
  4. DICLOFENAC [Suspect]
     Active Substance: DICLOFENAC
     Indication: NEURITIS
  5. NIMESULIDE [Suspect]
     Active Substance: NIMESULIDE
     Indication: NEURITIS
     Dosage: 100 MG, QD
     Route: 065
  6. PARACETAMOL [Suspect]
     Active Substance: ACETAMINOPHEN
     Indication: SCIATICA
     Dosage: 1 DF, QD
     Route: 065
  7. PARACETAMOL [Suspect]
     Active Substance: ACETAMINOPHEN
     Dosage: 8?9 G,QD
     Route: 065
  8. NIMESULIDE [Suspect]
     Active Substance: NIMESULIDE
     Dosage: 1 DF, QD
     Route: 065

REACTIONS (6)
  - Oligohydramnios [Unknown]
  - Premature delivery [Recovered/Resolved]
  - Maternal exposure during pregnancy [Recovered/Resolved]
  - Prescribed overdose [Unknown]
  - Contraindication to medical treatment [Unknown]
  - Product use issue [Unknown]
